FAERS Safety Report 10419882 (Version 1)
Quarter: 2014Q2

REPORT INFORMATION
  Report Type: Spontaneous
  Country: US (occurrence: None)
  Receive Date: 20140627
  Receipt Date: 20140627
  Transmission Date: 20141212
  Serious: Yes (Other)
  Sender: FDA-Public Use
  Company Number: CABO-14004126

PATIENT
  Age: 83 Year
  Sex: Female

DRUGS (5)
  1. COMETRIQ (CABOZANTINIB) CAPSULE [Suspect]
     Indication: THYROID CANCER
     Route: 048
     Dates: start: 20140301
  2. ARMOUR THYROID (THYROID) [Concomitant]
  3. VITAMIN A (RETINOL) [Concomitant]
  4. VITAMIN C (ASCORBIC ACID) [Concomitant]
  5. CALCIUM (CALCIUM) [Concomitant]

REACTIONS (8)
  - Diarrhoea haemorrhagic [None]
  - Memory impairment [None]
  - Fatigue [None]
  - Dysgeusia [None]
  - Dizziness [None]
  - Vision blurred [None]
  - Hearing impaired [None]
  - Nasopharyngitis [None]
